FAERS Safety Report 22022199 (Version 1)
Quarter: 2023Q1

REPORT INFORMATION
  Report Type: Spontaneous
  Country: US (occurrence: None)
  Receive Date: 20230220
  Receipt Date: 20230220
  Transmission Date: 20230417
  Serious: Yes (Disabling)
  Sender: FDA-Public Use
  Company Number: None

PATIENT
  Age: 22 Year
  Sex: Female
  Weight: 68.04 kg

DRUGS (3)
  1. KYLEENA [Suspect]
     Active Substance: LEVONORGESTREL
  2. AIMOVIG [Concomitant]
     Active Substance: ERENUMAB-AOOE
  3. EMGALITY [Concomitant]
     Active Substance: GALCANEZUMAB-GNLM

REACTIONS (4)
  - Weight increased [None]
  - Asthenia [None]
  - Libido decreased [None]
  - Abdominal distension [None]

NARRATIVE: CASE EVENT DATE: 20220201
